FAERS Safety Report 23286834 (Version 2)
Quarter: 2023Q4

REPORT INFORMATION
  Report Type: Report from Study
  Country: US (occurrence: US)
  Receive Date: 20231212
  Receipt Date: 20231222
  Transmission Date: 20240110
  Serious: Yes (Hospitalization, Other)
  Sender: FDA-Public Use
  Company Number: US-SANOFI-01865213

PATIENT
  Age: 79 Year
  Sex: Female

DRUGS (2)
  1. DRONEDARONE [Suspect]
     Active Substance: DRONEDARONE
     Indication: Atrial fibrillation
     Dosage: 400 MG BID
     Route: 048
     Dates: start: 20230406
  2. LASIX [Concomitant]
     Active Substance: FUROSEMIDE
     Dosage: UNK
     Route: 065

REACTIONS (3)
  - Pericardial effusion [Unknown]
  - Hypertension [Unknown]
  - Respiration abnormal [Unknown]

NARRATIVE: CASE EVENT DATE: 20231015
